FAERS Safety Report 9816650 (Version 2)
Quarter: 2014Q1

REPORT INFORMATION
  Report Type: Report from Study
  Country: BR (occurrence: BR)
  Receive Date: 20140114
  Receipt Date: 20140114
  Transmission Date: 20141002
  Serious: Yes (Other)
  Sender: FDA-Public Use
  Company Number: BR-ELI_LILLY_AND_COMPANY-BR201309003077

PATIENT
  Age: 79 Year
  Sex: Female
  Weight: 54 kg

DRUGS (5)
  1. LISPRO REGLISPRO [Suspect]
     Indication: DIABETES MELLITUS
     Dosage: UNK, TID
     Route: 058
  2. HUMAN INSULIN (RDNA ORIGIN) NPH [Suspect]
     Indication: PRODUCT USED FOR UNKNOWN INDICATION
     Dosage: UNK, UNKNOWN
     Route: 065
  3. NATRILIX                           /00340101/ [Concomitant]
     Indication: HYPERTENSION
     Dosage: UNK, QD
     Route: 065
  4. ATORVASTATIN [Concomitant]
     Indication: BLOOD CHOLESTEROL INCREASED
     Dosage: UNK, EACH EVENING
     Route: 065
  5. VERAPAMIL [Concomitant]
     Indication: HYPERTENSION
     Dosage: UNK, OTHER
     Route: 065

REACTIONS (12)
  - Syncope [Recovered/Resolved]
  - Eye haemorrhage [Not Recovered/Not Resolved]
  - Hypoglycaemia [Unknown]
  - Blood glucose fluctuation [Not Recovered/Not Resolved]
  - Visual impairment [Not Recovered/Not Resolved]
  - Nausea [Not Recovered/Not Resolved]
  - Feeling cold [Not Recovered/Not Resolved]
  - Dizziness [Not Recovered/Not Resolved]
  - Malaise [Not Recovered/Not Resolved]
  - Retching [Not Recovered/Not Resolved]
  - Somnolence [Not Recovered/Not Resolved]
  - Hypersensitivity [Recovered/Resolved]
